FAERS Safety Report 16161850 (Version 1)
Quarter: 2019Q2

REPORT INFORMATION
  Report Type: Spontaneous
  Country: JP (occurrence: JP)
  Receive Date: 20190405
  Receipt Date: 20190405
  Transmission Date: 20190711
  Serious: Yes (Death, Hospitalization, Other)
  Sender: FDA-Public Use
  Company Number: JP-SUN PHARMACEUTICAL INDUSTRIES LTD-2019RR-204267

PATIENT
  Age: 18 Year
  Sex: Male

DRUGS (12)
  1. TRAMETINIB [Suspect]
     Active Substance: TRAMETINIB
     Indication: ROSAI-DORFMAN SYNDROME
     Route: 065
  2. CARBOPLATIN. [Suspect]
     Active Substance: CARBOPLATIN
     Indication: HISTIOCYTIC SARCOMA
  3. IFOSPHAMIDE [Suspect]
     Active Substance: IFOSFAMIDE
     Indication: HISTIOCYTIC SARCOMA
  4. CLADRIBINE. [Suspect]
     Active Substance: CLADRIBINE
     Indication: HISTIOCYTIC SARCOMA
  5. ETOPOSIDE. [Suspect]
     Active Substance: ETOPOSIDE
     Indication: HISTIOCYTIC SARCOMA
  6. CLADRIBINE. [Suspect]
     Active Substance: CLADRIBINE
     Indication: ROSAI-DORFMAN SYNDROME
     Dosage: UNK
     Route: 065
  7. PREDNISOLONE. [Suspect]
     Active Substance: PREDNISOLONE
     Indication: ROSAI-DORFMAN SYNDROME
     Route: 065
  8. PREDNISOLONE. [Suspect]
     Active Substance: PREDNISOLONE
     Indication: HISTIOCYTIC SARCOMA
  9. IFOSPHAMIDE [Suspect]
     Active Substance: IFOSFAMIDE
     Indication: ROSAI-DORFMAN SYNDROME
     Route: 065
  10. ETOPOSIDE. [Suspect]
     Active Substance: ETOPOSIDE
     Indication: ROSAI-DORFMAN SYNDROME
     Route: 065
  11. CARBOPLATIN. [Suspect]
     Active Substance: CARBOPLATIN
     Indication: ROSAI-DORFMAN SYNDROME
     Route: 065
  12. TRAMETINIB [Suspect]
     Active Substance: TRAMETINIB
     Indication: HISTIOCYTIC SARCOMA

REACTIONS (10)
  - Gastrointestinal haemorrhage [Unknown]
  - Pancreatic enzymes increased [Unknown]
  - Vitreous haemorrhage [Unknown]
  - Emphysema [Unknown]
  - Sepsis [Unknown]
  - Disease progression [Unknown]
  - Infection [Unknown]
  - Device related infection [Unknown]
  - Immunosuppression [Unknown]
  - Small intestinal perforation [Fatal]
